FAERS Safety Report 4704931-4 (Version None)
Quarter: 2005Q2

REPORT INFORMATION
  Report Type: 
  Country: None (occurrence: None)
  Receive Date: 20050630
  Receipt Date: 20050630
  Transmission Date: 20051028
  Serious: No
  Sender: FDA-Public Use
  Company Number: None

PATIENT
  Age: 61 Year
  Sex: Male
  Weight: 56.6996 kg

DRUGS (9)
  1. MEGESTROL  4 MG/ML   PAR [Suspect]
     Indication: WEIGHT DECREASED
     Dosage: 400 MG  DAILY   ORAL
     Route: 048
     Dates: start: 20050506, end: 20050510
  2. ALBUTEROL [Concomitant]
  3. SALMETEROL [Concomitant]
  4. IPRATROPIUM BROMIDE [Concomitant]
  5. FLUTICASONE PROPIONATE [Concomitant]
  6. OMEPRAZOLE [Concomitant]
  7. MORPHINE [Concomitant]
  8. NORTRIPTYLINE HCL [Concomitant]
  9. LACTULOSE [Concomitant]

REACTIONS (1)
  - ASTHMA [None]
